FAERS Safety Report 9004704 (Version 1)
Quarter: 2013Q1

REPORT INFORMATION
  Report Type: Spontaneous
  Country: US (occurrence: None)
  Receive Date: 20130104
  Receipt Date: 20130104
  Transmission Date: 20140127
  Serious: Yes (Other)
  Sender: FDA-Public Use
  Company Number: None

PATIENT
  Age: 50 Year
  Sex: Female
  Weight: 65.77 kg

DRUGS (1)
  1. HYDROCODONE + ACETAMINOPHEN [Suspect]
     Indication: PAIN
     Dosage: 1 TAB  EVERY 6 HOURS  PO
     Route: 048
     Dates: start: 20121227, end: 20121229

REACTIONS (6)
  - Product substitution issue [None]
  - Product quality issue [None]
  - Drug ineffective [None]
  - Nausea [None]
  - Tachycardia [None]
  - Dyspnoea [None]
